FAERS Safety Report 9187338 (Version 1)
Quarter: 2013Q1

REPORT INFORMATION
  Report Type: Spontaneous
  Country: GB (occurrence: GB)
  Receive Date: 20130325
  Receipt Date: 20130325
  Transmission Date: 20140127
  Serious: Yes (Death, Hospitalization)
  Sender: FDA-Public Use
  Company Number: GB-BAXTER-2013BAX008349

PATIENT
  Age: 28 Year
  Sex: Female

DRUGS (3)
  1. DIANEAL PD4 GLUCOSE 1.36% W/V / 13.6 MG/ML [Suspect]
     Indication: RENAL FAILURE CHRONIC
     Route: 033
     Dates: start: 20040323
  2. DIANEAL PD4 GLUCOSE 2.27% W/V / 22.7 MG/ML [Suspect]
     Indication: RENAL FAILURE CHRONIC
     Route: 032
     Dates: start: 20040323
  3. EXTRANEAL (ICODEXTRIN 7.5%) SOLUTION FOR PERITONEAL DIALYSIS [Suspect]
     Indication: RENAL FAILURE CHRONIC
     Route: 033
     Dates: start: 20040323

REACTIONS (2)
  - Peritonitis bacterial [Fatal]
  - Peritoneal dialysis complication [Unknown]
